FAERS Safety Report 8226014-1 (Version None)
Quarter: 2012Q1

REPORT INFORMATION
  Report Type: 
  Country: None (occurrence: None)
  Receive Date: 20120321
  Receipt Date: 20120315
  Transmission Date: 20120608
  Serious: No
  Sender: FDA-Public Use
  Company Number: US-PFIZER INC-2012069603

PATIENT
  Sex: Male
  Weight: 113 kg

DRUGS (3)
  1. DILANTIN [Suspect]
     Indication: CONVULSION
     Dosage: 200 MG, 4X/DAY
     Route: 048
  2. PHENOBARBITAL [Concomitant]
     Indication: CONVULSION
     Dosage: UNK
  3. DILANTIN [Suspect]
     Dosage: 200 MG, TOOK IT ONCE
     Route: 048
     Dates: start: 20120201, end: 20120201

REACTIONS (2)
  - POOR QUALITY DRUG ADMINISTERED [None]
  - DIZZINESS [None]
